FAERS Safety Report 16472852 (Version 1)
Quarter: 2019Q2

REPORT INFORMATION
  Report Type: Spontaneous
  Country: US (occurrence: US)
  Receive Date: 20190625
  Receipt Date: 20190625
  Transmission Date: 20190711
  Serious: Yes (Hospitalization)
  Sender: FDA-Public Use
  Company Number: US-ALVOGEN-2019-ALVOGEN-100240

PATIENT
  Age: 38 Year
  Sex: Female

DRUGS (11)
  1. OXYCODONE [Suspect]
     Active Substance: OXYCODONE
     Indication: TUMOUR PAIN
     Dosage: AS NEEDED
  2. HYDROMORPHONE [Suspect]
     Active Substance: HYDROMORPHONE
     Indication: TUMOUR PAIN
     Dosage: BASAL INFUSION RATE
     Route: 042
  3. METHADONE [Suspect]
     Active Substance: METHADONE HYDROCHLORIDE
     Indication: TUMOUR PAIN
  4. DEXAMETHASONE. [Concomitant]
     Active Substance: DEXAMETHASONE
     Indication: PRODUCT USED FOR UNKNOWN INDICATION
     Route: 042
  5. OXYCODONE [Suspect]
     Active Substance: OXYCODONE
     Indication: TUMOUR PAIN
     Dosage: IMMEDIATE RELEASE
  6. OXYCODONE [Suspect]
     Active Substance: OXYCODONE
     Indication: TUMOUR PAIN
     Dosage: AS NEEDED
  7. METHADONE [Suspect]
     Active Substance: METHADONE HYDROCHLORIDE
     Indication: TUMOUR PAIN
     Route: 048
  8. OXYCODONE [Suspect]
     Active Substance: OXYCODONE
     Indication: TUMOUR PAIN
     Dosage: CONTINUOUS RELEASE
  9. HYDROMORPHONE [Suspect]
     Active Substance: HYDROMORPHONE
     Indication: TUMOUR PAIN
     Dosage: DEMAND DOSE
     Route: 042
  10. HYDROMORPHONE [Suspect]
     Active Substance: HYDROMORPHONE
     Indication: TUMOUR PAIN
     Dosage: AS NEEDED
  11. METHADONE [Suspect]
     Active Substance: METHADONE HYDROCHLORIDE
     Indication: TUMOUR PAIN

REACTIONS (2)
  - Hyperaesthesia [Recovering/Resolving]
  - Delirium [Recovering/Resolving]
